FAERS Safety Report 6288546-5 (Version None)
Quarter: 2009Q3

REPORT INFORMATION
  Report Type: 
  Country: None (occurrence: None)
  Receive Date: 20090729
  Receipt Date: 20090720
  Transmission Date: 20100115
  Serious: Yes (Death, Life-Threatening, Other)
  Sender: FDA-Public Use
  Company Number: US-JNJFOC-20060301623

PATIENT
  Sex: Female
  Weight: 44.45 kg

DRUGS (13)
  1. REMICADE [Suspect]
     Route: 042
     Dates: start: 20050316, end: 20051230
  2. REMICADE [Suspect]
     Route: 042
     Dates: start: 20050316, end: 20051230
  3. REMICADE [Suspect]
     Route: 042
     Dates: start: 20050316, end: 20051230
  4. REMICADE [Suspect]
     Route: 042
     Dates: start: 20050316, end: 20051230
  5. REMICADE [Suspect]
     Route: 042
     Dates: start: 20050316, end: 20051230
  6. REMICADE [Suspect]
     Route: 042
     Dates: start: 20050316, end: 20051230
  7. REMICADE [Suspect]
     Indication: RHEUMATOID ARTHRITIS
     Route: 042
     Dates: start: 20050316, end: 20051230
  8. MTX [Concomitant]
  9. FOLIC ACID [Concomitant]
  10. MOBIC [Concomitant]
  11. PREDNISONE [Concomitant]
  12. PREDNISONE [Concomitant]
     Indication: RHEUMATOID ARTHRITIS
  13. WELLBUTRIN [Concomitant]

REACTIONS (1)
  - LUNG NEOPLASM MALIGNANT [None]
